FAERS Safety Report 17840087 (Version 1)
Quarter: 2020Q2

REPORT INFORMATION
  Report Type: Spontaneous
  Country: US (occurrence: US)
  Receive Date: 20200529
  Receipt Date: 20200529
  Transmission Date: 20200714
  Serious: Yes (Death)
  Sender: FDA-Public Use
  Company Number: None

PATIENT
  Age: 73 Year
  Sex: Male
  Weight: 77 kg

DRUGS (14)
  1. CARBIDOPA-LEVODOPA [Concomitant]
     Active Substance: CARBIDOPA\LEVODOPA
  2. DONEPEZIL. [Concomitant]
     Active Substance: DONEPEZIL
  3. LISPRO [Concomitant]
     Active Substance: INSULIN LISPRO
  4. ASPIRIN. [Concomitant]
     Active Substance: ASPIRIN
  5. ENOXAPRIN [Concomitant]
     Active Substance: ENOXAPARIN
  6. SOLIFENECIN [Concomitant]
  7. ACETAMINOPHEN. [Concomitant]
     Active Substance: ACETAMINOPHEN
  8. METOPROLOL. [Concomitant]
     Active Substance: METOPROLOL
  9. ATORVASTATIN [Concomitant]
     Active Substance: ATORVASTATIN
  10. MONTELUKAST [Concomitant]
     Active Substance: MONTELUKAST SODIUM
  11. AZITHROMYCIN ANHYDROUS. [Concomitant]
     Active Substance: AZITHROMYCIN ANHYDROUS
  12. REMDESIVIR 100MG/20 ML [Suspect]
     Active Substance: REMDESIVIR
     Indication: COVID-19
     Route: 042
     Dates: start: 20200524, end: 20200525
  13. ETOMIDATE. [Concomitant]
     Active Substance: ETOMIDATE
  14. INSULIN [Concomitant]
     Active Substance: INSULIN NOS

REACTIONS (4)
  - Respiratory failure [None]
  - Hypoxia [None]
  - Severe acute respiratory syndrome [None]
  - Disease progression [None]

NARRATIVE: CASE EVENT DATE: 20200525
